FAERS Safety Report 8237234-4 (Version None)
Quarter: 2012Q1

REPORT INFORMATION
  Report Type: 
  Country: None (occurrence: None)
  Receive Date: 20120327
  Receipt Date: 20120320
  Transmission Date: 20120608
  Serious: Yes (Death)
  Sender: FDA-Public Use
  Company Number: US-PFIZER INC-2012072407

PATIENT
  Sex: Male

DRUGS (1)
  1. VFEND [Suspect]
     Indication: APLASTIC ANAEMIA
     Dosage: 200 MG, 2X/DAY

REACTIONS (2)
  - APLASTIC ANAEMIA [None]
  - DISEASE PROGRESSION [None]
